FAERS Safety Report 6609127-7 (Version None)
Quarter: 2010Q1

REPORT INFORMATION
  Report Type: 
  Country: None (occurrence: None)
  Receive Date: 20100226
  Receipt Date: 20100226
  Transmission Date: 20100710
  Serious: No
  Sender: FDA-Public Use
  Company Number: None

PATIENT
  Age: 4 Year
  Sex: Male
  Weight: 17.2367 kg

DRUGS (1)
  1. ATROPINE SULPHATE OPTHALMIC SOLU 1 % FALCON PHARMACEUTICALS [Suspect]
     Indication: AMBLYOPIA
     Dosage: 1 DROP 2 X'S PER WK OPTHALMIC
     Route: 047
     Dates: start: 20090501, end: 20100115

REACTIONS (3)
  - ABDOMINAL PAIN UPPER [None]
  - DECREASED APPETITE [None]
  - NAUSEA [None]
